FAERS Safety Report 7391371-5 (Version None)
Quarter: 2011Q2

REPORT INFORMATION
  Report Type: 
  Country: None (occurrence: None)
  Receive Date: 20110404
  Receipt Date: 20110331
  Transmission Date: 20111010
  Serious: No
  Sender: FDA-Public Use
  Company Number: US-PFIZER INC-2011034187

PATIENT
  Sex: Male
  Weight: 79 kg

DRUGS (2)
  1. ARTHROTEC [Suspect]
     Indication: INTERVERTEBRAL DISC PROTRUSION
     Dosage: 75MG, TWICE DAILY
     Route: 048
     Dates: start: 20101001
  2. ARTHROTEC [Suspect]
     Indication: BACK PAIN

REACTIONS (1)
  - DRUG EFFECT DECREASED [None]
